FAERS Safety Report 6155343-0 (Version None)
Quarter: 2009Q2

REPORT INFORMATION
  Report Type: 
  Country: None (occurrence: None)
  Receive Date: 20090415
  Receipt Date: 20090406
  Transmission Date: 20091009
  Serious: Yes (Congenital Anomaly, Other)
  Sender: FDA-Public Use
  Company Number: GB-ASTRAZENECA-2009GB00857

PATIENT
  Age: 12 Week
  Sex: Male

DRUGS (7)
  1. QUETIAPINE [Suspect]
     Indication: BIPOLAR DISORDER
     Dosage: 100 MG
     Route: 064
     Dates: start: 20080421, end: 20080616
  2. AMOXICILLIN [Suspect]
     Route: 064
     Dates: start: 20080707
  3. CODEINE [Suspect]
     Route: 064
  4. FERROUS SULFATE TAB [Suspect]
     Route: 064
     Dates: start: 20081006
  5. PRIADEL [Suspect]
     Indication: BIPOLAR DISORDER
     Route: 064
     Dates: start: 20050101
  6. REBOXETINE [Suspect]
     Indication: BIPOLAR DISORDER
     Route: 064
     Dates: start: 20050101, end: 20080529
  7. VENLAFAXINE HCL [Suspect]
     Indication: BIPOLAR DISORDER
     Route: 064
     Dates: start: 20050624

REACTIONS (1)
  - PIERRE ROBIN SYNDROME [None]
